FAERS Safety Report 25653249 (Version 1)
Quarter: 2025Q3

REPORT INFORMATION
  Report Type: Report from Study
  Country: US (occurrence: US)
  Receive Date: 20250807
  Receipt Date: 20250807
  Transmission Date: 20251021
  Serious: Yes (Other)
  Sender: TAKEDA
  Company Number: US-TAKEDA-2025TUS067792

PATIENT
  Sex: Male
  Weight: 78.9 kg

DRUGS (28)
  1. MARIBAVIR [Suspect]
     Active Substance: MARIBAVIR
     Indication: Product used for unknown indication
     Dosage: UNK UNK, BID
     Dates: start: 20250724
  2. TYLENOL [Concomitant]
     Active Substance: ACETAMINOPHEN
     Indication: Pain
     Dosage: UNK UNK, TID
     Dates: start: 20240725
  3. XANAX [Concomitant]
     Active Substance: ALPRAZOLAM
     Indication: Anxiety
     Dosage: 1 DOSAGE FORM, Q6HR
     Dates: start: 20240326
  4. ASPIRIN [Concomitant]
     Active Substance: ASPIRIN
     Dosage: UNK UNK, QD
     Dates: start: 20240808
  5. ZITHROMAX [Concomitant]
     Active Substance: AZITHROMYCIN DIHYDRATE
     Dosage: UNK UNK, 3/WEEK
     Dates: start: 20250623
  6. ZYRTEC [Concomitant]
     Active Substance: CETIRIZINE HYDROCHLORIDE
     Dosage: 10 MILLIGRAM, QD
  7. VITAMIN D3 [Concomitant]
     Active Substance: CHOLECALCIFEROL
     Dosage: 5000 INTERNATIONAL UNIT, Q2WEEKS
  8. COENZYME Q10 [Concomitant]
     Active Substance: DIETARY SUPPLEMENT\UBIDECARENONE
     Dosage: 100 MILLIGRAM, QD
  9. LEXAPRO [Concomitant]
     Active Substance: ESCITALOPRAM OXALATE
     Dosage: UNK UNK, QD
     Dates: start: 20240726
  10. NIVESTYM [Concomitant]
     Active Substance: FILGRASTIM-AAFI
     Dosage: 0.8 MILLILITER, QD
     Dates: start: 20250508
  11. NIVESTYM [Concomitant]
     Active Substance: FILGRASTIM-AAFI
     Dosage: 0.8 MILLILITER, QD
     Dates: start: 20250722
  12. NIVESTYM [Concomitant]
     Active Substance: FILGRASTIM-AAFI
     Dates: start: 20250728, end: 20250731
  13. FLONASE [Concomitant]
     Active Substance: FLUTICASONE PROPIONATE
     Dosage: UNK UNK, BID
     Dates: start: 20250320
  14. INSULIN ASPART [Concomitant]
     Active Substance: INSULIN ASPART
     Dosage: 12 INTERNATIONAL UNIT, TID
     Dates: start: 20250505
  15. Semglee [Concomitant]
     Dosage: 17 INTERNATIONAL UNIT, QD
     Dates: start: 20250417
  16. MAGNESIUM CHLORIDE [Concomitant]
     Active Substance: MAGNESIUM CHLORIDE
     Dosage: UNK UNK, BID
     Dates: start: 20240808
  17. VITAMINS [Concomitant]
     Active Substance: VITAMINS
     Dosage: UNK UNK, QD
  18. CELLCEPT [Concomitant]
     Active Substance: MYCOPHENOLATE MOFETIL
     Dosage: UNK UNK, BID
     Dates: start: 20250620
  19. ZOFRAN [Concomitant]
     Active Substance: ONDANSETRON HYDROCHLORIDE
     Dosage: UNK UNK, Q8HR
     Dates: start: 20250501
  20. PROTONIX [Concomitant]
     Active Substance: PANTOPRAZOLE SODIUM
     Dosage: UNK UNK, QD
     Dates: start: 20250401
  21. PREDNISONE [Concomitant]
     Active Substance: PREDNISONE
     Dosage: UNK UNK, QD
     Dates: start: 20250624
  22. INDERAL [Concomitant]
     Active Substance: PROPRANOLOL HYDROCHLORIDE
     Dosage: UNK UNK, TID
     Dates: start: 20250722
  23. CRESTOR [Concomitant]
     Active Substance: ROSUVASTATIN CALCIUM
     Dosage: UNK UNK, QD
     Dates: start: 20250710
  24. BACTRIM [Concomitant]
     Active Substance: SULFAMETHOXAZOLE\TRIMETHOPRIM
     Dosage: UNK UNK, QD
     Dates: start: 20250522
  25. PROGRAF [Concomitant]
     Active Substance: TACROLIMUS
     Dosage: UNK UNK, QD
     Dates: start: 20250501
  26. PROGRAF [Concomitant]
     Active Substance: TACROLIMUS
     Dosage: UNK, QD
     Dates: start: 20250605
  27. LAMISIL [Concomitant]
     Active Substance: TERBINAFINE HYDROCHLORIDE
     Dosage: 250 MILLIGRAM, QD
  28. VALCYTE [Concomitant]
     Active Substance: VALGANCICLOVIR HYDROCHLORIDE
     Dosage: 450 MILLIGRAM, BID

REACTIONS (5)
  - Cytomegalovirus viraemia [Unknown]
  - Fall [Unknown]
  - Frequent bowel movements [Unknown]
  - Post procedural complication [Unknown]
  - Skin injury [Unknown]
